FAERS Safety Report 9638343 (Version 1)
Quarter: 2013Q4

REPORT INFORMATION
  Report Type: Spontaneous
  Country: NL (occurrence: NL)
  Receive Date: 20131022
  Receipt Date: 20131022
  Transmission Date: 20140711
  Serious: Yes (Hospitalization)
  Sender: FDA-Public Use
  Company Number: NL-UCBSA-100241

PATIENT
  Age: 71 Year
  Sex: Male

DRUGS (4)
  1. NEUPRO [Suspect]
     Indication: PARKINSON^S DISEASE
     Dosage: DOSE: 2 MG / 24 HOURS (ONE / DAY)
     Route: 062
     Dates: start: 201307, end: 201309
  2. MADOPAR [Concomitant]
     Indication: PARKINSON^S DISEASE
     Route: 048
     Dates: start: 2008
  3. VALSARTAN [Concomitant]
     Indication: HYPERTENSION
     Route: 048
  4. CARBASALAATCALCIUM CARDIO [Concomitant]
     Indication: ANTIPSYCHOTIC DRUG LEVEL
     Route: 048

REACTIONS (2)
  - Inguinal hernia [Recovered/Resolved]
  - Application site reaction [Recovered/Resolved]
